FAERS Safety Report 6304988-3 (Version None)
Quarter: 2009Q3

REPORT INFORMATION
  Report Type: 
  Country: None (occurrence: None)
  Receive Date: 20090806
  Receipt Date: 20090512
  Transmission Date: 20100115
  Serious: Yes (Other)
  Sender: FDA-Public Use
  Company Number: 2009050044

PATIENT
  Age: 16 Year
  Sex: Male

DRUGS (3)
  1. ASTEPRO [Suspect]
     Dosage: 1 SPRAY/ NOSTRIL (274 MCG, 2 IN 1 D) , IN
     Dates: start: 20090511, end: 20090512
  2. ADVAIR (FLUTICASONE PROPIONATE, SALMETEROL) [Concomitant]
  3. NASONEX [Concomitant]

REACTIONS (4)
  - HYPERHIDROSIS [None]
  - HYPOAESTHESIA [None]
  - NASAL DISCOMFORT [None]
  - OROPHARYNGEAL PAIN [None]
